FAERS Safety Report 16682153 (Version 3)
Quarter: 2019Q4

REPORT INFORMATION
  Report Type: Spontaneous
  Country: CN (occurrence: CN)
  Receive Date: 20190808
  Receipt Date: 20191004
  Transmission Date: 20200122
  Serious: Yes (Other)
  Sender: FDA-Public Use
  Company Number: CN-ASTRAZENECA-2019SF12216

PATIENT
  Age: 761 Month
  Sex: Male
  Weight: 67 kg

DRUGS (1)
  1. IRESSA [Suspect]
     Active Substance: GEFITINIB
     Indication: NON-SMALL CELL LUNG CANCER
     Route: 048
     Dates: end: 201901

REACTIONS (7)
  - Asthenia [Unknown]
  - Malignant neoplasm progression [Unknown]
  - Wheezing [Unknown]
  - Diarrhoea [Not Recovered/Not Resolved]
  - Pleural effusion [Unknown]
  - Weight increased [Unknown]
  - Drug resistance [Unknown]

NARRATIVE: CASE EVENT DATE: 201901
